FAERS Safety Report 4338284-0 (Version None)
Quarter: 2004Q2

REPORT INFORMATION
  Report Type: 
  Country: None (occurrence: None)
  Receive Date: 20040414
  Receipt Date: 20040323
  Transmission Date: 20050107
  Serious: Yes (Death)
  Sender: FDA-Public Use
  Company Number: 200410992JP

PATIENT
  Age: 83 Year
  Sex: Male
  Weight: 55.6 kg

DRUGS (6)
  1. ARAVA [Suspect]
     Indication: RHEUMATOID ARTHRITIS
     Route: 048
     Dates: start: 20040108, end: 20040318
  2. NAIXAN [Concomitant]
     Route: 048
     Dates: end: 20040318
  3. PREDNISOLONE [Concomitant]
     Route: 048
     Dates: end: 20040318
  4. GASTER [Concomitant]
     Route: 048
     Dates: end: 20040318
  5. CYTOTEC [Concomitant]
     Route: 048
     Dates: end: 20040318
  6. INTEBAN [Concomitant]
     Route: 054
     Dates: end: 20040318

REACTIONS (8)
  - ALANINE AMINOTRANSFERASE INCREASED [None]
  - CARDIO-RESPIRATORY ARREST [None]
  - DISEASE PROGRESSION [None]
  - DRUG EFFECT DECREASED [None]
  - GLUCOSE URINE PRESENT [None]
  - INTERSTITIAL LUNG DISEASE [None]
  - PNEUMONIA BACTERIAL [None]
  - PULMONARY FIBROSIS [None]
